FAERS Safety Report 6709005-9 (Version None)
Quarter: 2010Q2

REPORT INFORMATION
  Report Type: 
  Country: None (occurrence: None)
  Receive Date: 20100504
  Receipt Date: 20100426
  Transmission Date: 20101027
  Serious: Yes (Other)
  Sender: FDA-Public Use
  Company Number: DE-EISAI INC.-E3810-03713-SPO-DE

PATIENT
  Sex: Male
  Weight: 103 kg

DRUGS (1)
  1. PARIET (RABEPRAZOLE) [Suspect]
     Indication: OESOPHAGITIS
     Route: 048

REACTIONS (2)
  - DYSKINESIA [None]
  - MYALGIA [None]
